FAERS Safety Report 24984319 (Version 1)
Quarter: 2025Q1

REPORT INFORMATION
  Report Type: Spontaneous
  Country: DE (occurrence: DE)
  Receive Date: 20250219
  Receipt Date: 20250219
  Transmission Date: 20250409
  Serious: Yes (Hospitalization, Other)
  Sender: REGENERON
  Company Number: DE-BAYER-2025A020769

PATIENT
  Age: 63 Year
  Sex: Male

DRUGS (2)
  1. EYLEA HD [Suspect]
     Active Substance: AFLIBERCEPT
     Indication: Retinal neovascularisation
     Route: 031
     Dates: start: 20240611, end: 20241001
  2. EYLEA HD [Suspect]
     Active Substance: AFLIBERCEPT
     Indication: Maculopathy

REACTIONS (1)
  - Visual impairment [Recovered/Resolved]

NARRATIVE: CASE EVENT DATE: 20241002
